FAERS Safety Report 7319780-0 (Version None)
Quarter: 2011Q1

REPORT INFORMATION
  Report Type: 
  Country: None (occurrence: None)
  Receive Date: 20110228
  Receipt Date: 20100922
  Transmission Date: 20110831
  Serious: No
  Sender: FDA-Public Use
  Company Number: A0882647A

PATIENT
  Age: 54 Year
  Sex: Female

DRUGS (6)
  1. METFORMIN [Concomitant]
  2. AMBIEN [Concomitant]
  3. LAMOTRIGINE [Suspect]
     Indication: BIPOLAR DISORDER
     Dosage: 50MG PER DAY
     Route: 048
     Dates: start: 20100901
  4. KLONOPIN [Concomitant]
  5. SEROQUEL [Concomitant]
  6. SYNTHROID [Concomitant]

REACTIONS (1)
  - RASH [None]
